FAERS Safety Report 7007071-7 (Version None)
Quarter: 2010Q3

REPORT INFORMATION
  Report Type: 
  Country: None (occurrence: None)
  Receive Date: 20100920
  Receipt Date: 20100904
  Transmission Date: 20110219
  Serious: Yes (Hospitalization)
  Sender: FDA-Public Use
  Company Number: AUR-APL-2010-02094

PATIENT
  Age: 60 Year
  Sex: Male
  Weight: 63.6 kg

DRUGS (10)
  1. HYDROCHLOROTHIAZIDE [Suspect]
     Dosage: ORAL
     Route: 048
     Dates: start: 20070927, end: 20071012
  2. LISINOPRIL [Suspect]
     Dosage: ORAL
     Route: 048
     Dates: start: 20070927, end: 20071012
  3. FLUCONAZOLE [Suspect]
     Indication: SYSTEMIC CANDIDA
     Dosage: 400 MG, DAILY, ORAL
     Route: 048
     Dates: start: 20071001, end: 20071012
  4. ANIDULAFUNGIN POWER/SOLVENT FOR SOLUTION FOR INFUSUION [Suspect]
     Indication: SYSTEMIC CANDIDA
     Dosage: 200 MG, 1 DOSE, IV; 100 MG, DAILY, IV
     Route: 042
     Dates: start: 20070926, end: 20070926
  5. ANIDULAFUNGIN POWER/SOLVENT FOR SOLUTION FOR INFUSUION [Suspect]
     Indication: SYSTEMIC CANDIDA
     Dosage: 200 MG, 1 DOSE, IV; 100 MG, DAILY, IV
     Route: 042
     Dates: start: 20070927, end: 20070930
  6. NIFEDIPINE [Suspect]
     Dosage: ORAL
     Route: 048
     Dates: start: 20071001, end: 20071012
  7. METHADONE [Concomitant]
  8. FOLIC ACID [Concomitant]
  9. THIAMINE HCL [Concomitant]
  10. ZOLOFT [Concomitant]

REACTIONS (3)
  - DEHYDRATION [None]
  - HYPOTENSION [None]
  - RENAL FAILURE ACUTE [None]
